FAERS Safety Report 17962389 (Version 4)
Quarter: 2021Q4

REPORT INFORMATION
  Report Type: Other
  Country: US (occurrence: US)
  Receive Date: 20200630
  Receipt Date: 20211022
  Transmission Date: 20220303
  Serious: Yes (Other)
  Sender: FDA-Public Use
  Company Number: US-ROCHE-2632615

PATIENT
  Sex: Male

DRUGS (3)
  1. RITUXAN [Suspect]
     Active Substance: RITUXIMAB
     Indication: Arteritis
     Dosage: INFUSE 1000MG INTRAVENOUSLY ON DAY 1 AND DAY 15 INTRAVENOUSLY EVERY 6 MONTHS., 2-500MG VIAL
     Route: 042
     Dates: start: 20210930
  2. RITUXAN [Suspect]
     Active Substance: RITUXIMAB
     Indication: Ventricular tachycardia
     Dosage: 2-500MG VIAL
     Route: 042
     Dates: start: 20211014
  3. RITUXAN [Suspect]
     Active Substance: RITUXIMAB
     Indication: Granulomatosis with polyangiitis

REACTIONS (2)
  - Atrial fibrillation [Unknown]
  - Off label use [Unknown]
